FAERS Safety Report 19570442 (Version 1)
Quarter: 2021Q3

REPORT INFORMATION
  Report Type: Spontaneous
  Country: US (occurrence: US)
  Receive Date: 20210715
  Receipt Date: 20210715
  Transmission Date: 20211014
  Serious: No
  Sender: FDA-Public Use
  Company Number: US-BAUSCH-BL-2021-018757

PATIENT
  Age: 44 Year
  Sex: Female

DRUGS (5)
  1. TRULANCE [Suspect]
     Active Substance: PLECANATIDE
     Indication: CONSTIPATION
     Dosage: APPROXIMATELY ONE YEAR AGO
     Route: 048
     Dates: start: 2020
  2. MAGNESIUM [Concomitant]
     Active Substance: MAGNESIUM
     Indication: PRODUCT USED FOR UNKNOWN INDICATION
  3. FLUOXETINE [Concomitant]
     Active Substance: FLUOXETINE HYDROCHLORIDE
     Indication: PRODUCT USED FOR UNKNOWN INDICATION
  4. TRULANCE [Suspect]
     Active Substance: PLECANATIDE
     Route: 048
     Dates: start: 20210524
  5. PROBIOTICS [Concomitant]
     Active Substance: PROBIOTICS NOS
     Indication: PRODUCT USED FOR UNKNOWN INDICATION

REACTIONS (2)
  - Pruritus [Not Recovered/Not Resolved]
  - Product quality issue [Unknown]

NARRATIVE: CASE EVENT DATE: 20210524
